FAERS Safety Report 5340074-7 (Version None)
Quarter: 2007Q2

REPORT INFORMATION
  Report Type: 
  Country: None (occurrence: None)
  Receive Date: 20070531
  Receipt Date: 20070529
  Transmission Date: 20071010
  Serious: Yes (Life-Threatening, Hospitalization)
  Sender: FDA-Public Use
  Company Number: DE-BAYER-200611127BVD

PATIENT
  Age: 64 Year
  Sex: Male

DRUGS (2)
  1. NEXAVAR [Suspect]
     Indication: UNEVALUABLE EVENT
     Route: 048
     Dates: start: 20060812
  2. IBUPROFEN [Concomitant]
     Indication: UNEVALUABLE EVENT

REACTIONS (1)
  - RENAL FAILURE [None]
